FAERS Safety Report 10011985 (Version 1)
Quarter: 2014Q1

REPORT INFORMATION
  Report Type: Spontaneous
  Country: GB (occurrence: GB)
  Receive Date: 20140314
  Receipt Date: 20140314
  Transmission Date: 20141002
  Serious: Yes (Other)
  Sender: FDA-Public Use
  Company Number: GB-GLAXOSMITHKLINE-B0976718A

PATIENT
  Sex: 0

DRUGS (1)
  1. NIQUITIN MINI LOZENGES [Suspect]

REACTIONS (1)
  - Dependence [Unknown]
